FAERS Safety Report 10656821 (Version 4)
Quarter: 2015Q1

REPORT INFORMATION
  Report Type: Report from Study
  Country: US (occurrence: US)
  Receive Date: 20141217
  Receipt Date: 20150205
  Transmission Date: 20150720
  Serious: Yes (Other)
  Sender: FDA-Public Use
  Company Number: US-AMGEN INC.-USASL2014097571

PATIENT
  Age: 68 Year
  Sex: Female

DRUGS (1)
  1. ENBREL [Suspect]
     Active Substance: ETANERCEPT
     Indication: RHEUMATOID ARTHRITIS
     Dosage: 50 MG, QWK
     Route: 065
     Dates: start: 20140923, end: 20150112

REACTIONS (7)
  - Pneumonia [Not Recovered/Not Resolved]
  - Malaise [Unknown]
  - Renal cyst [Not Recovered/Not Resolved]
  - Sinusitis [Recovered/Resolved]
  - Uterine leiomyoma [Not Recovered/Not Resolved]
  - Bronchitis [Recovered/Resolved]
  - No therapeutic response [Not Recovered/Not Resolved]

NARRATIVE: CASE EVENT DATE: 2014
